FAERS Safety Report 11505141 (Version 1)
Quarter: 2015Q3

REPORT INFORMATION
  Report Type: Spontaneous
  Country: US (occurrence: US)
  Receive Date: 20150915
  Receipt Date: 20150915
  Transmission Date: 20151125
  Serious: No
  Sender: FDA-Public Use
  Company Number: US-ROCHE-690956

PATIENT
  Age: 61 Year
  Sex: Male

DRUGS (2)
  1. PEGASYS [Suspect]
     Active Substance: PEGINTERFERON ALFA-2A
     Indication: HEPATITIS C
     Dosage: FORM: PRE-FILLED SYRINGE.OTHER INDICATION: HEPATITIS C, GENOTYPE 2B
     Route: 058
     Dates: start: 20100307, end: 20110130
  2. RIBAVIRIN. [Suspect]
     Active Substance: RIBAVIRIN
     Indication: HEPATITIS C
     Dosage: IN DIVIDED DOSES, FORM: PILL, OTHER INDICATION: HEPATITIS C, GENOTYPE 2B
     Route: 048
     Dates: start: 20100307, end: 20110130

REACTIONS (25)
  - Abdominal pain [Unknown]
  - Influenza like illness [Unknown]
  - Loose tooth [Not Recovered/Not Resolved]
  - Tinnitus [Unknown]
  - Hypoaesthesia [Unknown]
  - Rash [Unknown]
  - Pain [Not Recovered/Not Resolved]
  - Tooth fracture [Not Recovered/Not Resolved]
  - Anxiety [Not Recovered/Not Resolved]
  - Myalgia [Unknown]
  - Urinary incontinence [Unknown]
  - Musculoskeletal chest pain [Unknown]
  - Dysgeusia [Unknown]
  - Disturbance in attention [Unknown]
  - Viral infection [Not Recovered/Not Resolved]
  - Chest pain [Unknown]
  - Fatigue [Unknown]
  - Weight decreased [Unknown]
  - Arthralgia [Unknown]
  - Irritability [Not Recovered/Not Resolved]
  - Diarrhoea [Unknown]
  - Rash [Unknown]
  - Nasal congestion [Unknown]
  - Toothache [Recovering/Resolving]
  - Bone pain [Not Recovered/Not Resolved]

NARRATIVE: CASE EVENT DATE: 20100307
